FAERS Safety Report 25949636 (Version 1)
Quarter: 2025Q4

REPORT INFORMATION
  Report Type: Spontaneous
  Country: EU (occurrence: EU)
  Receive Date: 20251022
  Receipt Date: 20251022
  Transmission Date: 20260117
  Serious: Yes (Hospitalization)
  Sender: MYLAN
  Company Number: None

PATIENT
  Age: 77 Year
  Sex: Male

DRUGS (8)
  1. GEMCITABINE [Suspect]
     Active Substance: GEMCITABINE
     Indication: Lung adenocarcinoma
     Dosage: 2230 MILLIGRAM
     Dates: start: 20250814, end: 20250814
  2. GEMCITABINE [Suspect]
     Active Substance: GEMCITABINE
     Dosage: 2230 MILLIGRAM
     Route: 042
     Dates: start: 20250814, end: 20250814
  3. GEMCITABINE [Suspect]
     Active Substance: GEMCITABINE
     Dosage: 2230 MILLIGRAM
     Route: 042
     Dates: start: 20250814, end: 20250814
  4. GEMCITABINE [Suspect]
     Active Substance: GEMCITABINE
     Dosage: 2230 MILLIGRAM
     Dates: start: 20250814, end: 20250814
  5. PEMBROLIZUMAB [Suspect]
     Active Substance: PEMBROLIZUMAB
     Indication: Lung adenocarcinoma
     Dosage: 200 MILLIGRAM, MONTHLY
     Dates: start: 20250213, end: 20250724
  6. PEMBROLIZUMAB [Suspect]
     Active Substance: PEMBROLIZUMAB
     Dosage: 200 MILLIGRAM, MONTHLY
     Route: 042
     Dates: start: 20250213, end: 20250724
  7. PEMBROLIZUMAB [Suspect]
     Active Substance: PEMBROLIZUMAB
     Dosage: 200 MILLIGRAM, MONTHLY
     Route: 042
     Dates: start: 20250213, end: 20250724
  8. PEMBROLIZUMAB [Suspect]
     Active Substance: PEMBROLIZUMAB
     Dosage: 200 MILLIGRAM, MONTHLY
     Dates: start: 20250213, end: 20250724

REACTIONS (1)
  - Eosinophilia [Recovering/Resolving]

NARRATIVE: CASE EVENT DATE: 20250826
